FAERS Safety Report 9000965 (Version 2)
Quarter: 2013Q1

REPORT INFORMATION
  Report Type: Spontaneous
  Country: MW (occurrence: MW)
  Receive Date: 20130107
  Receipt Date: 20130115
  Transmission Date: 20140127
  Serious: Yes (Death, Other)
  Sender: FDA-Public Use
  Company Number: PHHY2013MW001301

PATIENT
  Age: 42 Year
  Sex: Male
  Weight: 85 kg

DRUGS (4)
  1. GLIVEC [Suspect]
     Indication: CHRONIC MYELOID LEUKAEMIA
     Dosage: 400 MG, DAILY
     Route: 048
     Dates: start: 20120713, end: 20121220
  2. GLIVEC [Suspect]
     Dosage: 600 MG, DAILY
     Route: 048
     Dates: start: 20121220
  3. CHEMOTHERAPEUTICS,OTHER [Concomitant]
  4. HYDROXYCARBAMIDE [Concomitant]
     Indication: CHRONIC MYELOID LEUKAEMIA
     Dosage: 1.5 G, UNK
     Route: 048
     Dates: start: 20091201, end: 20120713

REACTIONS (3)
  - Blast crisis in myelogenous leukaemia [Fatal]
  - Haemorrhage [Unknown]
  - Thrombocytopenia [Unknown]
